FAERS Safety Report 4742838-7 (Version None)
Quarter: 2005Q3

REPORT INFORMATION
  Report Type: 
  Country: None (occurrence: None)
  Receive Date: 20050811
  Receipt Date: 20050803
  Transmission Date: 20060218
  Serious: Yes (Other)
  Sender: FDA-Public Use
  Company Number: PHNU2005DE02797

PATIENT
  Sex: Male

DRUGS (3)
  1. SIMVASTATIN [Suspect]
     Indication: HYPERCHOLESTEROLAEMIA
     Dates: end: 20050701
  2. EZETROL [Suspect]
     Indication: HYPERCHOLESTEROLAEMIA
     Dates: end: 20050701
  3. LOCOL [Suspect]
     Indication: HYPERCHOLESTEROLAEMIA
     Dosage: 80 MG, QD
     Route: 048
     Dates: start: 20050701

REACTIONS (3)
  - ABDOMINAL PAIN LOWER [None]
  - COLON POLYPECTOMY [None]
  - COLONIC POLYP [None]
